FAERS Safety Report 7691650-8 (Version None)
Quarter: 2011Q3

REPORT INFORMATION
  Report Type: 
  Country: None (occurrence: None)
  Receive Date: 20110818
  Receipt Date: 20110808
  Transmission Date: 20111222
  Serious: No
  Sender: FDA-Public Use
  Company Number: US-B.I. PHARMACEUTICALS,INC./RIDGEFIELD-2011-BP-19485BP

PATIENT
  Sex: Female

DRUGS (19)
  1. PROAIR HFA [Concomitant]
     Indication: ASTHMA
     Route: 055
  2. XOPENEX [Concomitant]
  3. SYNTHROID [Concomitant]
     Dosage: 25 MCG
  4. AMLODIPINE [Concomitant]
     Dosage: 5 MG
     Route: 048
  5. CITALOPRAM HYDROBROMIDE [Concomitant]
     Dosage: 40 MG
     Route: 048
  6. CIPROFLOXACIN [Concomitant]
     Dosage: 500 MG
     Route: 048
  7. LORAZEPAM [Concomitant]
     Dosage: 4 MG
     Route: 048
  8. PREDNISONE [Concomitant]
     Dosage: 3 MG
     Route: 048
  9. VIT B12 [Concomitant]
     Dosage: 500 MCG
     Route: 048
  10. METRONIDAZOLE [Concomitant]
     Dosage: 500 MG
     Route: 048
  11. ADVAIR DISKUS 100/50 [Concomitant]
     Indication: ASTHMA
     Route: 055
  12. DIGOXIN [Concomitant]
     Dosage: 125 MCG
  13. THEOPHYLLINE [Concomitant]
     Dosage: 100 MG
     Route: 048
  14. SPIRIVA [Suspect]
     Indication: CHRONIC OBSTRUCTIVE PULMONARY DISEASE
     Dosage: 18 MCG
     Route: 055
     Dates: start: 20090401, end: 20110808
  15. MORPHINE [Concomitant]
     Indication: DYSPNOEA
     Dosage: 0.2 ML
  16. BUSPIRONE [Concomitant]
     Dosage: 10 MG
  17. DULCOLAX [Concomitant]
     Dosage: 100 MG
     Route: 048
  18. ASPIRIN [Concomitant]
     Dosage: 81 MG
     Route: 048
  19. NEXIUM [Concomitant]
     Dosage: 40 MG
     Route: 048

REACTIONS (2)
  - URINARY RETENTION [None]
  - DIVERTICULITIS [None]
